FAERS Safety Report 5955849-0 (Version None)
Quarter: 2008Q4

REPORT INFORMATION
  Report Type: 
  Country: None (occurrence: None)
  Receive Date: 20081117
  Receipt Date: 20081106
  Transmission Date: 20090506
  Serious: Yes (Other)
  Sender: FDA-Public Use
  Company Number: JP-PFIZER INC-2008096369

PATIENT
  Sex: Male

DRUGS (1)
  1. CARDENALIN [Suspect]
     Indication: HYPERTENSION
     Route: 048
     Dates: start: 20081105

REACTIONS (1)
  - BLOOD PRESSURE INADEQUATELY CONTROLLED [None]
